FAERS Safety Report 6919912-X (Version None)
Quarter: 2010Q3

REPORT INFORMATION
  Report Type: 
  Country: None (occurrence: None)
  Receive Date: 20100810
  Receipt Date: 20100810
  Transmission Date: 20110219
  Serious: Yes (Hospitalization)
  Sender: FDA-Public Use
  Company Number: None

PATIENT
  Age: 45 Year
  Sex: Male
  Weight: 74.8435 kg

DRUGS (1)
  1. DISOPYRAMIDE [Suspect]
     Indication: ARRHYTHMIA PROPHYLAXIS
     Dosage: 1 CAPSULE TWICE DAILY PO
     Route: 048
     Dates: start: 20090915, end: 20100809

REACTIONS (5)
  - ATRIAL FIBRILLATION [None]
  - DRUG INEFFECTIVE [None]
  - PRODUCT FORMULATION ISSUE [None]
  - PRODUCT QUALITY ISSUE [None]
  - PRODUCT SUBSTITUTION ISSUE [None]
